FAERS Safety Report 10537745 (Version 1)
Quarter: 2014Q4

REPORT INFORMATION
  Report Type: Spontaneous
  Country: US (occurrence: None)
  Receive Date: 20141021
  Receipt Date: 20141021
  Transmission Date: 20150529
  Serious: Yes (Other)
  Sender: FDA-Public Use
  Company Number: FK201404205

PATIENT
  Age: 65 Year
  Sex: Male

DRUGS (4)
  1. 5-FLUOROURACIL (FLUOROURACIL) [Concomitant]
  2. LEUCOVORIN (CALCIUM FOLINATE) [Concomitant]
     Active Substance: LEUCOVORIN
  3. IRINOTECAN (MANUFACTURER UNKNOWN) (IRINOTECAN) (IRINOTECAN) [Suspect]
     Active Substance: IRINOTECAN
     Indication: MANTLE CELL LYMPHOMA
  4. OXALIPLATIN (MANUFACTURER UNKNOWN) (OXALIPLATIN) (OXALIPLATIN) [Suspect]
     Active Substance: OXALIPLATIN
     Indication: MANTLE CELL LYMPHOMA

REACTIONS (5)
  - Peripheral sensory neuropathy [None]
  - Ophthalmoplegia [None]
  - Neurotoxicity [None]
  - Hepatosplenomegaly [None]
  - Dysarthria [None]
